FAERS Safety Report 6446730-1 (Version None)
Quarter: 2009Q4

REPORT INFORMATION
  Report Type: 
  Country: None (occurrence: None)
  Receive Date: 20091119
  Receipt Date: 20091111
  Transmission Date: 20100525
  Serious: Yes (Hospitalization)
  Sender: FDA-Public Use
  Company Number: US-ABBOTT-09P-163-0608054-00

PATIENT
  Sex: Female
  Weight: 83.99 kg

DRUGS (1)
  1. SYNTHROID [Suspect]
     Indication: HYPOTHYROIDISM
     Route: 048
     Dates: start: 19840101

REACTIONS (12)
  - ABDOMINAL DISTENSION [None]
  - ABDOMINAL INFECTION [None]
  - BLADDER REPAIR [None]
  - HYSTERECTOMY [None]
  - INSOMNIA [None]
  - INTESTINAL PERFORATION [None]
  - IRRITABILITY [None]
  - MALAISE [None]
  - NERVOUSNESS [None]
  - NONSPECIFIC REACTION [None]
  - SKIN DISCOLOURATION [None]
  - SUTURE RELATED COMPLICATION [None]
